FAERS Safety Report 12801335 (Version 2)
Quarter: 2016Q4

REPORT INFORMATION
  Report Type: Spontaneous
  Country: US (occurrence: US)
  Receive Date: 20161003
  Receipt Date: 20161007
  Transmission Date: 20170207
  Serious: Yes (Hospitalization, Other)
  Sender: FDA-Public Use
  Company Number: US-BAUSCH-BL-2016-024108

PATIENT
  Age: 56 Year
  Sex: Female
  Weight: 158.9 kg

DRUGS (2)
  1. XIFAXAN [Suspect]
     Active Substance: RIFAXIMIN
     Route: 065
     Dates: start: 201609
  2. XIFAXAN [Suspect]
     Active Substance: RIFAXIMIN
     Indication: GASTROINTESTINAL TOXICITY
     Route: 065
     Dates: end: 20160919

REACTIONS (4)
  - Intestinal obstruction [Unknown]
  - Vomiting [Unknown]
  - Coma [Recovered/Resolved]
  - Ammonia abnormal [Not Recovered/Not Resolved]

NARRATIVE: CASE EVENT DATE: 20160919
